FAERS Safety Report 9239476 (Version 4)
Quarter: 2013Q3

REPORT INFORMATION
  Report Type: Report from Study
  Country: JP (occurrence: JP)
  Receive Date: 20130418
  Receipt Date: 20130710
  Transmission Date: 20140515
  Serious: Yes (Other)
  Sender: FDA-Public Use
  Company Number: JP-PFIZER INC-2013108013

PATIENT
  Age: 39 Year
  Sex: Female
  Weight: 66.1 kg

DRUGS (10)
  1. SIROLIMUS [Suspect]
     Indication: LYMPHANGIOLEIOMYOMATOSIS
     Dosage: 2 MG, 1X/DAY
     Route: 048
     Dates: start: 20120919, end: 20130403
  2. LIPITOR [Suspect]
     Indication: HYPERLIPIDAEMIA
     Dosage: UNK
     Dates: start: 20130130
  3. CONIEL [Concomitant]
     Indication: HYPERTENSION
     Route: 048
  4. DAI-KENCHU-TO [Concomitant]
     Indication: ABDOMINAL DISCOMFORT
     Route: 048
  5. SEREVENT [Concomitant]
     Indication: LYMPHANGIOLEIOMYOMATOSIS
     Route: 039
  6. ALVESCO [Concomitant]
     Indication: LYMPHANGIOLEIOMYOMATOSIS
     Route: 039
  7. MEPTIN [Concomitant]
     Indication: ASTHMA
     Dosage: UNK
     Route: 039
     Dates: start: 20130227
  8. NEUER [Concomitant]
     Indication: NAUSEA
     Dosage: UNK
     Dates: start: 20120926, end: 20130403
  9. NEUER [Concomitant]
     Indication: VOMITING
  10. NEUER [Concomitant]
     Indication: GASTRITIS PROPHYLAXIS

REACTIONS (1)
  - Lung disorder [Recovered/Resolved]
